FAERS Safety Report 10994048 (Version 1)
Quarter: 2015Q2

REPORT INFORMATION
  Report Type: Spontaneous
  Country: US (occurrence: None)
  Receive Date: 20150406
  Receipt Date: 20150406
  Transmission Date: 20150821
  Serious: Yes (Hospitalization)
  Sender: FDA-Public Use
  Company Number: US-2015CRT000016

PATIENT
  Age: 54 Year
  Sex: Female

DRUGS (19)
  1. OXYCODONE [Concomitant]
     Active Substance: OXYCODONE
  2. ZANTAC [Concomitant]
     Active Substance: RANITIDINE HYDROCHLORIDE
  3. BUMEX [Concomitant]
     Active Substance: BUMETANIDE
  4. LITHIUM. [Concomitant]
     Active Substance: LITHIUM
  5. METOLAZONE. [Concomitant]
     Active Substance: METOLAZONE
  6. KETOCONAZOLE CREAM [Concomitant]
     Active Substance: KETOCONAZOLE
  7. CYMBALTA [Concomitant]
     Active Substance: DULOXETINE HYDROCHLORIDE
  8. PROPRANOLOL [Concomitant]
     Active Substance: PROPRANOLOL\PROPRANOLOL HYDROCHLORIDE
  9. CLONAZEPAM. [Concomitant]
     Active Substance: CLONAZEPAM
  10. BUSPIRONE [Concomitant]
     Active Substance: BUSPIRONE HYDROCHLORIDE
  11. KCL [Concomitant]
     Active Substance: POTASSIUM CHLORIDE
  12. VITAMIN D [Concomitant]
     Active Substance: CHOLECALCIFEROL
  13. SUCRALFATE. [Concomitant]
     Active Substance: SUCRALFATE
  14. ALLOPURINOL. [Concomitant]
     Active Substance: ALLOPURINOL
  15. KORLYM [Suspect]
     Active Substance: MIFEPRISTONE
     Indication: CUSHING^S SYNDROME
     Route: 048
     Dates: start: 20150210, end: 201503
  16. SPIRINOLACTONE [Concomitant]
  17. LEVOTHYROXINE [Concomitant]
     Active Substance: LEVOTHYROXINE
  18. AMBIEN [Concomitant]
     Active Substance: ZOLPIDEM TARTRATE
  19. HUMULIN NOS [Concomitant]
     Active Substance: INSULIN HUMAN

REACTIONS (5)
  - Fall [None]
  - Confusional state [None]
  - Hallucination [None]
  - Blood sodium decreased [None]
  - General physical health deterioration [None]

NARRATIVE: CASE EVENT DATE: 20150211
